FAERS Safety Report 26022291 (Version 3)
Quarter: 2025Q4

REPORT INFORMATION
  Report Type: Spontaneous
  Country: EU (occurrence: EU)
  Receive Date: 20251110
  Receipt Date: 20251126
  Transmission Date: 20260117
  Serious: Yes (Death, Other)
  Sender: NOVARTIS
  Company Number: EU-002147023-NVSC2025RO172274

PATIENT
  Age: 56 Year
  Sex: Male

DRUGS (5)
  1. IMATINIB [Suspect]
     Active Substance: IMATINIB
     Indication: Gastrointestinal cancer metastatic
     Dosage: 400 MG, QD DAILY
     Route: 065
  2. IMATINIB [Suspect]
     Active Substance: IMATINIB
     Indication: Metastases to liver
  3. IMATINIB [Suspect]
     Active Substance: IMATINIB
     Indication: Metastases to peritoneum
  4. GEMCITABINE [Suspect]
     Active Substance: GEMCITABINE
     Indication: Gastrointestinal cancer metastatic
     Dosage: UNK
     Route: 065
  5. OXALIPLATIN [Suspect]
     Active Substance: OXALIPLATIN
     Indication: Gastrointestinal cancer metastatic
     Dosage: UNK
     Route: 065

REACTIONS (5)
  - Pneumonia bacterial [Fatal]
  - Disease progression [Fatal]
  - Gastrointestinal stromal tumour [Unknown]
  - Malignant neoplasm progression [Unknown]
  - Drug resistance [Unknown]
